FAERS Safety Report 8591395-6 (Version None)
Quarter: 2012Q3

REPORT INFORMATION
  Report Type: 
  Country: None (occurrence: None)
  Receive Date: 20120801
  Receipt Date: 20101222
  Transmission Date: 20120928
  Serious: Yes (Other)
  Sender: FDA-Public Use
  Company Number: US-BANPHARM-20120009

PATIENT
  Age: 75 Year
  Sex: Female
  Weight: 57 kg

DRUGS (9)
  1. ALEVE [Suspect]
     Indication: PAIN
     Dosage: 220MG X 1.2 X A DAY ORAL
     Route: 048
     Dates: start: 20101210
  2. OXCODONE [Concomitant]
  3. ALEVE [Suspect]
     Indication: PAIN
     Dosage: 220MG X2, 1 X A DAY ORAL
     Route: 048
     Dates: start: 20101210, end: 20101223
  4. GABAPENTIN [Concomitant]
  5. MULTI-VITAMIN [Concomitant]
  6. PREDNISONE [Concomitant]
  7. ARMOR-THYROID [Concomitant]
  8. CHLORDIAZEPOXIDE [Concomitant]
  9. NUVIGIL [Concomitant]

REACTIONS (6)
  - DIZZINESS [None]
  - BLOOD PRESSURE INCREASED [None]
  - HEART RATE INCREASED [None]
  - NAUSEA [None]
  - PALPITATIONS [None]
  - RETCHING [None]
